FAERS Safety Report 9490828 (Version 2)
Quarter: 2013Q3

REPORT INFORMATION
  Report Type: Report from Study
  Country: US (occurrence: US)
  Receive Date: 20130830
  Receipt Date: 20130905
  Transmission Date: 20140515
  Serious: Yes (Death, Other)
  Sender: FDA-Public Use
  Company Number: US-PFIZER INC-2013247086

PATIENT
  Age: 23 Month
  Sex: Female
  Weight: 9.75 kg

DRUGS (21)
  1. CRIZOTINIB [Suspect]
     Indication: MESOBLASTIC NEPHROMA
     Dosage: (25 MG/ML) 280 MG/M2, BID, LIQUID, (PO, THROUGH NG TUBE)
     Route: 048
     Dates: start: 20130813
  2. ACETAMINOPHEN [Concomitant]
     Dosage: 130 MG
     Route: 042
     Dates: start: 20130825
  3. ACETAMINOPHEN [Concomitant]
     Dosage: 130 MG, LIQUID
     Dates: start: 20130825
  4. ACETAMINOPHEN [Concomitant]
     Dosage: 130 MG, UNK
     Dates: start: 20130826
  5. CEFTAZIDIME [Concomitant]
     Dosage: 433 MG
     Route: 042
     Dates: start: 20130825
  6. CEFTAZIDIME [Concomitant]
     Dosage: 433 MG
     Route: 042
     Dates: start: 20130825
  7. DOCUSATE [Concomitant]
     Dosage: 10 MG
     Route: 048
     Dates: start: 20130825
  8. DOCUSATE [Concomitant]
     Dosage: 10 MG
     Route: 048
     Dates: start: 20130825
  9. LANSOPRAZOLE [Concomitant]
     Dosage: 10 MG
     Route: 048
     Dates: start: 20130825
  10. METHADONE [Concomitant]
     Dosage: 0.8 MG
     Route: 042
     Dates: start: 20130825
  11. METHADONE [Concomitant]
     Dosage: 0.8 MG
     Route: 042
     Dates: start: 20130825
  12. METHADONE [Concomitant]
     Dosage: 0.8 MG
     Route: 042
     Dates: start: 20130825
  13. PANTOPRAZOLE [Concomitant]
     Dosage: 15 MG
     Route: 042
     Dates: start: 20130825
  14. POTASSIUM PHOSPHATE-SODIUM PHOSPHATE [Concomitant]
     Dosage: 4 MMOL
     Route: 048
     Dates: start: 20130825
  15. POTASSIUM PHOSPHATE-SODIUM PHOSPHATE [Concomitant]
     Dosage: 4 MMOL
     Route: 048
     Dates: start: 20130825
  16. SENNA [Concomitant]
     Dosage: 10 MG
     Route: 048
     Dates: start: 20130825
  17. SODIUM BICARBONATE 8.4% [Concomitant]
     Dosage: 20 MEQ
     Route: 042
     Dates: start: 20130825
  18. SULFAMETHOXAZOLE-TRIMETHOPRIM [Concomitant]
     Dosage: 24 MG
     Route: 048
     Dates: start: 20130825
  19. SULFAMETHOXAZOLE-TRIMETHOPRIM [Concomitant]
     Dosage: 24 MG
     Route: 048
     Dates: start: 20130825
  20. ONDANSETRON [Concomitant]
     Dosage: 0.9 MG
     Route: 042
     Dates: start: 20130825
  21. ONDANSETRON [Concomitant]
     Dosage: 0.9 MG
     Route: 042
     Dates: start: 20130825

REACTIONS (3)
  - Platelet count decreased [Unknown]
  - Disease progression [Fatal]
  - Mesoblastic nephroma [Fatal]
